FAERS Safety Report 13552693 (Version 6)
Quarter: 2019Q1

REPORT INFORMATION
  Report Type: Report from Study
  Country: JP (occurrence: JP)
  Receive Date: 20170517
  Receipt Date: 20190219
  Transmission Date: 20190417
  Serious: Yes (Hospitalization)
  Sender: FDA-Public Use
  Company Number: JP-ROCHE-1935719

PATIENT
  Age: 71 Year
  Sex: Male
  Weight: 60.8 kg

DRUGS (12)
  1. TANATRIL [Suspect]
     Active Substance: IMIDAPRIL
     Indication: HYPERTENSION
     Route: 048
     Dates: start: 2004
  2. CYTOTEC [Suspect]
     Active Substance: MISOPROSTOL
     Indication: GASTRITIS PROPHYLAXIS
     Route: 048
     Dates: start: 20120322, end: 20120525
  3. PLACEBO [Suspect]
     Active Substance: UNSPECIFIED INGREDIENT
     Indication: RHEUMATOID ARTHRITIS
     Route: 058
     Dates: start: 20100917
  4. LANDEL [Suspect]
     Active Substance: UNSPECIFIED INGREDIENT
     Indication: HYPERTENSION
     Route: 048
     Dates: start: 2004
  5. TOCILIZUMAB. [Suspect]
     Active Substance: TOCILIZUMAB
     Indication: RHEUMATOID ARTHRITIS
     Route: 042
     Dates: start: 20100917
  6. TOCILIZUMAB. [Suspect]
     Active Substance: TOCILIZUMAB
     Route: 058
     Dates: start: 20120223, end: 20120223
  7. INAVIR DRY POWDER INHALER [Concomitant]
     Indication: INFLUENZA
     Route: 055
  8. TOCILIZUMAB. [Suspect]
     Active Substance: TOCILIZUMAB
     Indication: RHEUMATOID ARTHRITIS
     Route: 058
     Dates: start: 20110304
  9. OLMETEC [Suspect]
     Active Substance: OLMESARTAN MEDOXOMIL
     Indication: HYPERTENSION
     Route: 048
     Dates: start: 20090306
  10. XOFLUZA [Concomitant]
     Active Substance: BALOXAVIR MARBOXIL
     Route: 065
     Dates: start: 20190122
  11. MOHRUS TAPE [Suspect]
     Active Substance: KETOPROFEN
     Indication: RHEUMATOID ARTHRITIS
     Dosage: SINGLE USE
     Route: 061
     Dates: start: 20030704
  12. ADALAT CC [Suspect]
     Active Substance: NIFEDIPINE
     Indication: HYPERTENSION
     Route: 048
     Dates: start: 20101001

REACTIONS (2)
  - Steroid diabetes [Not Recovered/Not Resolved]
  - Febrile neutropenia [Recovered/Resolved]

NARRATIVE: CASE EVENT DATE: 20170502
